FAERS Safety Report 25990740 (Version 2)
Quarter: 2025Q4

REPORT INFORMATION
  Report Type: Spontaneous
  Country: JP (occurrence: JP)
  Receive Date: 20251103
  Receipt Date: 20251217
  Transmission Date: 20260117
  Serious: Yes (Death, Other)
  Sender: ARDELYX
  Company Number: JP-ARDELYX-2025ARDX008147

PATIENT
  Age: 74 Year
  Sex: Female

DRUGS (1)
  1. TENAPANOR HYDROCHLORIDE [Suspect]
     Active Substance: TENAPANOR HYDROCHLORIDE
     Indication: Product used for unknown indication
     Dosage: 5 MG
     Route: 048
     Dates: start: 20250220, end: 2025

REACTIONS (1)
  - Cerebral infarction [Fatal]

NARRATIVE: CASE EVENT DATE: 20250408
